FAERS Safety Report 9162227 (Version 1)
Quarter: 2013Q1

REPORT INFORMATION
  Report Type: Spontaneous
  Country: US (occurrence: None)
  Receive Date: 20130117
  Receipt Date: 20130117
  Transmission Date: 20140127
  Serious: Yes (Hospitalization, Other)
  Sender: FDA-Public Use
  Company Number: 2013PROUSA02447

PATIENT
  Age: 87 Year
  Sex: Male
  Weight: 62.6 kg

DRUGS (10)
  1. PROVENGE (SIPULEUCEL-T) SUSPENSION, 250ML [Suspect]
     Indication: PROSTATE CANCER METASTATIC
     Route: 042
     Dates: start: 20121203, end: 20121203
  2. CASODEX (BICALUTAMIDE) [Concomitant]
  3. FLOMAX (TAMSULOSIN HYDROCHLORIDE) [Concomitant]
  4. LUNESTA (ESZOPLICONE) [Concomitant]
  5. B-12 (CYANOCOBALAMIN) [Concomitant]
  6. MEGACE (MEGESTROL ACETATE) [Concomitant]
  7. XGEVA (DENOSUMAB) [Concomitant]
  8. CHOLESTYRAMINE (COLESTYRAMINE) [Concomitant]
  9. LORTAB (HYDROCODONE BITARTRATE, PARACETAMOL) [Concomitant]
  10. CALCIUM + VIT D (CALCIUM CARBONATE, VITAMIN D NOS) [Concomitant]

REACTIONS (9)
  - Renal failure acute [None]
  - Anaemia [None]
  - Hypothyroidism [None]
  - Depression [None]
  - Pain [None]
  - Asthenia [None]
  - Urinary tract infection [None]
  - Hypovolaemia [None]
  - Hydronephrosis [None]
